FAERS Safety Report 24156735 (Version 1)
Quarter: 2024Q3

REPORT INFORMATION
  Report Type: Spontaneous
  Country: GB (occurrence: GB)
  Receive Date: 20240731
  Receipt Date: 20240731
  Transmission Date: 20241017
  Serious: Yes (Other)
  Sender: AUROBINDO
  Company Number: GB-MHRA-MED-202407210124074600-ZFWGB

PATIENT
  Age: 25 Year

DRUGS (1)
  1. CLARITHROMYCIN [Suspect]
     Active Substance: CLARITHROMYCIN
     Indication: Oral infection
     Dosage: 500 MILLIGRAM, TWO TIMES A DAY (500MG TWICE A DAY)
     Route: 065

REACTIONS (7)
  - Noninfective gingivitis [Recovering/Resolving]
  - Lip pain [Recovering/Resolving]
  - Stomatitis [Recovering/Resolving]
  - Gingival pain [Recovering/Resolving]
  - Gingival bleeding [Recovered/Resolved with Sequelae]
  - Insomnia [Not Recovered/Not Resolved]
  - Lethargy [Unknown]
